FAERS Safety Report 8602656-6 (Version None)
Quarter: 2012Q3

REPORT INFORMATION
  Report Type: 
  Country: None (occurrence: None)
  Receive Date: 20120817
  Receipt Date: 20120808
  Transmission Date: 20120928
  Serious: Yes (Hospitalization)
  Sender: FDA-Public Use
  Company Number: BR-ASTRAZENECA-2012SE56793

PATIENT
  Age: 76 Year
  Sex: Female
  Weight: 58 kg

DRUGS (4)
  1. CLONAZEPAM [Concomitant]
     Indication: INSOMNIA
     Route: 048
  2. HYGROTON [Concomitant]
     Indication: HYPERTENSION
     Route: 048
  3. SYMBICORT [Suspect]
     Indication: PULMONARY FIBROSIS
     Dosage: 320/9 MCG TWO TIMES A DAY
     Route: 055
     Dates: start: 20110101
  4. ENALAPRIL [Concomitant]
     Indication: HYPERTENSION
     Route: 048

REACTIONS (4)
  - IDIOPATHIC PULMONARY FIBROSIS [None]
  - SEPSIS [None]
  - DRUG INEFFECTIVE [None]
  - PNEUMONIA [None]
